FAERS Safety Report 5356549-0 (Version None)
Quarter: 2007Q2

REPORT INFORMATION
  Report Type: 
  Country: None (occurrence: None)
  Receive Date: 20070531
  Receipt Date: 20060207
  Transmission Date: 20071010
  Serious: Yes (Hospitalization)
  Sender: FDA-Public Use
  Company Number: 329978

PATIENT
  Age: 30 Year
  Sex: Male
  Weight: 78.2 kg

DRUGS (5)
  1. LARIAM [Suspect]
     Indication: PROPHYLAXIS
     Dosage: 1 DOSE FORM 1 PER WEEK ORAL
     Route: 048
     Dates: start: 20021221, end: 20021228
  2. UNSPECIFIED IMMUNIZATIONS (IMMUNISATION) [Concomitant]
  3. EFFEXOR [Concomitant]
  4. LORAZEPAM [Concomitant]
  5. ULTRAN (PHENAGLYCODOL) [Concomitant]

REACTIONS (23)
  - ABNORMAL DREAMS [None]
  - AGITATION [None]
  - BALANCE DISORDER [None]
  - CLAUSTROPHOBIA [None]
  - DEPRESSION [None]
  - DISTURBANCE IN ATTENTION [None]
  - DIZZINESS [None]
  - DRY MOUTH [None]
  - DYSPNOEA [None]
  - EYE IRRITATION [None]
  - FATIGUE [None]
  - HALLUCINATION [None]
  - HEADACHE [None]
  - HEART RATE INCREASED [None]
  - INSOMNIA [None]
  - MEMORY IMPAIRMENT [None]
  - MOOD SWINGS [None]
  - NERVOUSNESS [None]
  - NIGHTMARE [None]
  - PANIC ATTACK [None]
  - PSYCHOTIC DISORDER [None]
  - SUICIDAL IDEATION [None]
  - TREMOR [None]
